FAERS Safety Report 9665736 (Version 56)
Quarter: 2021Q3

REPORT INFORMATION
  Report Type: Report from Study
  Country: CA (occurrence: CA)
  Receive Date: 20131104
  Receipt Date: 20210709
  Transmission Date: 20211014
  Serious: Yes (Death, Hospitalization, Other)
  Sender: FDA-Public Use
  Company Number: PHHY2012CA032089

PATIENT
  Age: 83 Year
  Sex: Male

DRUGS (48)
  1. SANDOSTATIN LAR DEPOT [Suspect]
     Active Substance: OCTREOTIDE ACETATE
     Indication: NEUROENDOCRINE TUMOUR
     Dosage: 20 MG, Q4W
     Route: 030
     Dates: start: 20110309, end: 20131227
  2. SANDOSTATIN LAR DEPOT [Suspect]
     Active Substance: OCTREOTIDE ACETATE
     Dosage: 20 MG, Q4W
     Route: 030
     Dates: start: 20200829
  3. APO DILTIAZ [Concomitant]
     Active Substance: DILTIAZEM HYDROCHLORIDE
     Indication: PRODUCT USED FOR UNKNOWN INDICATION
     Dosage: UNK
     Route: 048
  4. SEEBRI [Concomitant]
     Active Substance: GLYCOPYRROLATE
     Indication: PRODUCT USED FOR UNKNOWN INDICATION
     Dosage: 1 DF, QD
     Route: 055
  5. TAMSULOSIN CR [Concomitant]
     Active Substance: TAMSULOSIN
     Indication: PRODUCT USED FOR UNKNOWN INDICATION
     Dosage: 0.4 MG, QD
     Route: 065
     Dates: start: 20200829
  6. TOBRAMYCIN. [Concomitant]
     Active Substance: TOBRAMYCIN
     Indication: PRODUCT USED FOR UNKNOWN INDICATION
     Dosage: UNK (40 MG/ML) (CONTENTS OF 1 VIAL (2 ML = 80 MG) IN THE NEBULIZER)
     Route: 065
     Dates: start: 20200918
  7. SANDOSTATIN LAR DEPOT [Suspect]
     Active Substance: OCTREOTIDE ACETATE
     Indication: PANCREATIC CARCINOMA
     Dosage: 20 MG, Q4W
     Route: 030
     Dates: start: 2010, end: 202004
  8. SANDOSTATIN LAR DEPOT [Suspect]
     Active Substance: OCTREOTIDE ACETATE
     Dosage: 20 MG, QMO (EVERY 4 WEEKS)
     Route: 030
     Dates: start: 20180605
  9. COVERSYL [Concomitant]
     Active Substance: PERINDOPRIL
     Indication: BLOOD PRESSURE ABNORMAL
     Dosage: UNK
     Route: 048
  10. LAX?A?DAY [Concomitant]
     Active Substance: POLYETHYLENE GLYCOL 3350
     Indication: PRODUCT USED FOR UNKNOWN INDICATION
     Dosage: 17 G, QD (DAILY AS NEEDED IN 250 ML LIQUID)
     Route: 065
     Dates: start: 20210414
  11. COLACE [Concomitant]
     Active Substance: DOCUSATE SODIUM
     Indication: PRODUCT USED FOR UNKNOWN INDICATION
     Dosage: 100 MG, BID
     Route: 065
     Dates: start: 20210414
  12. PRIVA PANTOPRAZOLE [Concomitant]
     Indication: PRODUCT USED FOR UNKNOWN INDICATION
     Dosage: 40 MG, BID
     Route: 065
     Dates: start: 20210420
  13. PANTOPRAZOL RANBAXY [Concomitant]
     Indication: PRODUCT USED FOR UNKNOWN INDICATION
     Dosage: UNK
     Route: 048
  14. CLAVIX [Concomitant]
     Indication: PRODUCT USED FOR UNKNOWN INDICATION
     Dosage: UNK
     Route: 048
  15. PLAVIX [Concomitant]
     Active Substance: CLOPIDOGREL BISULFATE
     Indication: PRODUCT USED FOR UNKNOWN INDICATION
     Dosage: 75 MG
     Route: 065
  16. SALBUTAMOL [Concomitant]
     Active Substance: ALBUTEROL
     Dosage: 1 DF, BID
     Route: 055
  17. ZOPICLONE [Concomitant]
     Active Substance: ZOPICLONE
     Indication: PRODUCT USED FOR UNKNOWN INDICATION
     Dosage: 5 MG (1 TABLET HOURLY AS NEEDED)
     Route: 065
     Dates: start: 20210225
  18. DILAUDID [Concomitant]
     Active Substance: HYDROMORPHONE HYDROCHLORIDE
     Indication: PRODUCT USED FOR UNKNOWN INDICATION
     Dosage: 2 MG (1 TABLET EVERY 4?6 HOURS AS NEEDED)
     Route: 065
     Dates: start: 20210413
  19. ADACEL TDAP [Concomitant]
     Active Substance: TETANUS TOXOID, REDUCED DIPHTHERIA TOXOID AND ACELLULAR PERTUSSIS VACCINE ADSORBED, TDAP
     Indication: PRODUCT USED FOR UNKNOWN INDICATION
     Dosage: UNK
     Route: 065
     Dates: start: 20181107
  20. INFLUVAC [Concomitant]
     Active Substance: INFLUENZA VIRUS VACCINE TRIVALENT TYPE A+B
     Indication: PRODUCT USED FOR UNKNOWN INDICATION
     Dosage: UNK
     Route: 065
     Dates: start: 20181107
  21. SANDOSTATIN LAR DEPOT [Suspect]
     Active Substance: OCTREOTIDE ACETATE
     Dosage: 20 MG, Q3W, (EVERY 3 WEEKS)
     Route: 030
     Dates: start: 20140117, end: 20160707
  22. BABY ASPIRIN [Concomitant]
     Active Substance: ASPIRIN
     Indication: PRODUCT USED FOR UNKNOWN INDICATION
     Dosage: UNK
     Route: 048
  23. EURO FOLIC [Concomitant]
     Active Substance: FOLIC ACID
     Indication: PRODUCT USED FOR UNKNOWN INDICATION
     Dosage: UNK
     Route: 048
  24. LYRICA [Concomitant]
     Active Substance: PREGABALIN
     Indication: PRODUCT USED FOR UNKNOWN INDICATION
     Dosage: UNK
     Route: 048
  25. METFORMIN [Concomitant]
     Active Substance: METFORMIN HYDROCHLORIDE
     Indication: PRODUCT USED FOR UNKNOWN INDICATION
     Dosage: 1 DF, BID
     Route: 048
  26. PANTOLOC [Concomitant]
     Active Substance: PANTOPRAZOLE SODIUM
     Indication: PRODUCT USED FOR UNKNOWN INDICATION
     Dosage: 40 MG
     Route: 065
  27. SALBUTAMOL [Concomitant]
     Active Substance: ALBUTEROL
     Indication: PRODUCT USED FOR UNKNOWN INDICATION
     Dosage: 100 UG, Q4H (2 TO 4 INHALATIONS EVERY 4 HOURS AS NEEDED)
     Dates: start: 20200829
  28. VENTOLIN [Concomitant]
     Active Substance: ALBUTEROL SULFATE
     Indication: PRODUCT USED FOR UNKNOWN INDICATION
     Dosage: UNK UNK, BID (1 MG/ML; 2.5 ML/NEBULE)
     Dates: start: 20200917
  29. APO CLOPIDOGREL [Concomitant]
     Indication: PRODUCT USED FOR UNKNOWN INDICATION
     Dosage: 75 MG, QD
     Route: 065
     Dates: start: 20210225
  30. SENOKOT [Concomitant]
     Active Substance: SENNOSIDES
     Indication: PRODUCT USED FOR UNKNOWN INDICATION
     Dosage: 8.6 MG, QD (2 TABLETS DAILY)
     Route: 065
     Dates: start: 20210414
  31. ATORVASTATIN TEVA [Concomitant]
     Active Substance: ATORVASTATIN
     Indication: PRODUCT USED FOR UNKNOWN INDICATION
     Dosage: UNK
     Route: 048
  32. SINGULAIR [Concomitant]
     Active Substance: MONTELUKAST SODIUM
     Indication: PRODUCT USED FOR UNKNOWN INDICATION
     Dosage: 10 MG
     Route: 065
  33. SEEBRI BREEZHALER [Concomitant]
     Active Substance: GLYCOPYRROLATE
     Indication: PRODUCT USED FOR UNKNOWN INDICATION
     Dosage: 50 UG, QD
     Dates: start: 20200829
  34. PMS AZITHROMYCIN [Concomitant]
     Active Substance: AZITHROMYCIN ANHYDROUS
     Indication: PRODUCT USED FOR UNKNOWN INDICATION
     Dosage: 250 MG, TIW (2 TABLETS 3 TIMES PER WEEK)
     Route: 065
     Dates: start: 20200917
  35. MONTELUKAST [Concomitant]
     Active Substance: MONTELUKAST SODIUM
     Indication: PRODUCT USED FOR UNKNOWN INDICATION
     Dosage: 10 MG, QD
     Route: 065
     Dates: start: 20210225
  36. VITAMIN B12 [Concomitant]
     Active Substance: CYANOCOBALAMIN
     Indication: PRODUCT USED FOR UNKNOWN INDICATION
     Dosage: 1200 UG, QD
     Route: 065
     Dates: start: 20210225
  37. FLOMAX [Concomitant]
     Active Substance: TAMSULOSIN HYDROCHLORIDE
     Indication: PRODUCT USED FOR UNKNOWN INDICATION
     Dosage: UNK
     Route: 048
  38. COTAZYM ECS [Concomitant]
     Indication: PRODUCT USED FOR UNKNOWN INDICATION
     Dosage: 3 UNK, TID (STRENGTH?10,800?42,000?45,000)
     Route: 048
  39. OPUS K 20 [Concomitant]
     Indication: PRODUCT USED FOR UNKNOWN INDICATION
     Dosage: 20 MEQ, QD
     Route: 065
     Dates: start: 20200829
  40. SANDOSTATIN LAR DEPOT [Suspect]
     Active Substance: OCTREOTIDE ACETATE
     Dosage: 20 MG, QMO (EVERY 4 WEEKS)
     Route: 030
     Dates: start: 20160808
  41. K?DUR [Concomitant]
     Active Substance: POTASSIUM CHLORIDE
     Indication: PRODUCT USED FOR UNKNOWN INDICATION
     Dosage: UNK
     Route: 048
  42. ZENHALE [Concomitant]
     Active Substance: FORMOTEROL FUMARATE\MOMETASONE FUROATE
     Indication: PRODUCT USED FOR UNKNOWN INDICATION
     Dosage: 2 DF, BID (5+200 MG)
     Dates: start: 20200829
  43. IPRATROPIUM TEVA [Concomitant]
     Indication: PRODUCT USED FOR UNKNOWN INDICATION
     Dosage: 2 ML, BID (250 MICG/ML)
     Dates: start: 20200917
  44. TYLENOL [Concomitant]
     Active Substance: ACETAMINOPHEN
     Indication: PRODUCT USED FOR UNKNOWN INDICATION
     Dosage: 500 MG, Q6H (2 TABLETS EVERY 6 HOURS AS NEEDED)
     Route: 065
  45. PNEUMOVAX 23 [Concomitant]
     Active Substance: PNEUMOCOCCAL VACCINE, POLYVALENT 23
     Indication: PRODUCT USED FOR UNKNOWN INDICATION
     Dosage: UNK
     Route: 065
     Dates: start: 20101124
  46. MONTELUKAST [Concomitant]
     Active Substance: MONTELUKAST SODIUM
     Indication: PRODUCT USED FOR UNKNOWN INDICATION
     Dosage: 1 DF, OTHER
     Route: 048
  47. AZITHROMYCIN ANHYDROUS. [Concomitant]
     Active Substance: AZITHROMYCIN ANHYDROUS
     Indication: PRODUCT USED FOR UNKNOWN INDICATION
     Dosage: 250 MG, TIW (2 TABLETS, 3 TIMES PER WEEK)
     Route: 065
     Dates: start: 20200604
  48. PREGABALIN. [Concomitant]
     Active Substance: PREGABALIN
     Indication: PRODUCT USED FOR UNKNOWN INDICATION
     Dosage: 50 MG, BID (1 CAPSULE BID FOR 1 WEEK)
     Route: 065
     Dates: start: 20210104

REACTIONS (82)
  - Frequent bowel movements [Unknown]
  - Chronic obstructive pulmonary disease [Unknown]
  - Hypocalcaemia [Unknown]
  - Hypomagnesaemia [Unknown]
  - Lacunar stroke [Unknown]
  - Peripheral arterial occlusive disease [Unknown]
  - Aortic aneurysm [Unknown]
  - Hyperhidrosis [Unknown]
  - Intestinal obstruction [Unknown]
  - Aneurysm [Unknown]
  - Aortic aneurysm [Recovered/Resolved]
  - Gait disturbance [Not Recovered/Not Resolved]
  - Faeces soft [Unknown]
  - Headache [Unknown]
  - Dehydration [Recovering/Resolving]
  - Cerebrovascular accident [Unknown]
  - Faeces discoloured [Unknown]
  - Weight decreased [Unknown]
  - Asthenia [Unknown]
  - Malaise [Unknown]
  - Eating disorder [Unknown]
  - Urinary retention [Unknown]
  - Cataract [Unknown]
  - Confusional state [Recovered/Resolved]
  - Blood iron decreased [Unknown]
  - Vision blurred [Unknown]
  - Chest pain [Unknown]
  - Sleep apnoea syndrome [Unknown]
  - Bronchitis [Unknown]
  - Device leakage [Unknown]
  - General physical health deterioration [Unknown]
  - Constipation [Unknown]
  - Gastrointestinal inflammation [Unknown]
  - Respiratory disorder [Unknown]
  - Bronchiectasis [Unknown]
  - Generalised oedema [Unknown]
  - Death [Fatal]
  - Nausea [Recovering/Resolving]
  - Hypoaesthesia [Unknown]
  - Diarrhoea [Recovered/Resolved]
  - Decreased appetite [Unknown]
  - Muscular weakness [Unknown]
  - Diverticulitis [Unknown]
  - Pneumonia bacterial [Unknown]
  - Arterial stenosis [Unknown]
  - Skin mass [Unknown]
  - Pain of skin [Recovered/Resolved]
  - Tongue discolouration [Unknown]
  - Gastrooesophageal reflux disease [Unknown]
  - Bacterial infection [Unknown]
  - Postoperative adhesion [Unknown]
  - Pulmonary embolism [Unknown]
  - Abdominal pain [Unknown]
  - Renal impairment [Recovered/Resolved]
  - Pneumonitis [Unknown]
  - Visual impairment [Unknown]
  - Colitis microscopic [Unknown]
  - Leukoplakia oral [Unknown]
  - Monoclonal gammopathy [Unknown]
  - Diarrhoea [Unknown]
  - Steatorrhoea [Unknown]
  - Abdominal pain upper [Unknown]
  - Muscle atrophy [Unknown]
  - Diabetes mellitus [Unknown]
  - Dyspnoea [Unknown]
  - Urethral pain [Unknown]
  - Cerebral thrombosis [Recovered/Resolved]
  - Blood pressure increased [Unknown]
  - Vomiting [Recovering/Resolving]
  - Blood magnesium decreased [Unknown]
  - Blood potassium decreased [Unknown]
  - Vitamin B12 deficiency [Unknown]
  - Gastritis [Unknown]
  - Dyspepsia [Unknown]
  - Gastrointestinal bacterial infection [Recovered/Resolved]
  - Pneumonia [Unknown]
  - Colitis ischaemic [Unknown]
  - Syringomyelia [Unknown]
  - Normochromic anaemia [Unknown]
  - Pruritus [Unknown]
  - Heart rate decreased [Unknown]
  - Inappropriate schedule of product administration [Unknown]

NARRATIVE: CASE EVENT DATE: 2011
